FAERS Safety Report 7941137-X (Version None)
Quarter: 2011Q4

REPORT INFORMATION
  Report Type: 
  Country: None (occurrence: None)
  Receive Date: 20111128
  Receipt Date: 20111115
  Transmission Date: 20120403
  Serious: Yes (Other)
  Sender: FDA-Public Use
  Company Number: SE-JNJFOC-20111107929

PATIENT
  Sex: Female

DRUGS (1)
  1. NORGESTIMATE AND ETHINYL ESTRADIOL [Suspect]
     Indication: HAEMORRHAGE
     Route: 065
     Dates: end: 20111114

REACTIONS (2)
  - GOITRE [None]
  - OFF LABEL USE [None]
